FAERS Safety Report 8701783 (Version 2)
Quarter: 2012Q4

REPORT INFORMATION
  Report Type: 
  Country: US (occurrence: US)
  Receive Date: 20120803
  Receipt Date: 20120830
  Transmission Date: 20130627
  Serious: Yes (Other)
  Sender: FDA-Public Use
  Company Number: PHEH2012US014936

PATIENT
  Sex: Female
  Weight: 77.55 kg

DRUGS (7)
  1. RECLAST [Suspect]
     Dosage: 5mg/100ml
     Route: 042
     Dates: start: 20120727
  2. PREVACID [Concomitant]
     Dosage: 30 mg, ONCE/SINGLE
     Route: 048
  3. ENABLEX [Concomitant]
     Dosage: 7.5 mg, ONCE/SINGLE
     Route: 048
  4. MULTIVITAMINS [Concomitant]
     Dosage: UNK UKN, UNK
     Route: 048
  5. FIORICET [Concomitant]
     Dosage: 1 DF, (50-325-40 mg)
     Route: 048
  6. CIPRO [Concomitant]
     Dosage: 250 mg, BID
  7. TYLENOL [Concomitant]
     Indication: PAIN
     Dosage: UNK UKN, UNK

REACTIONS (16)
  - Urinary tract infection [Unknown]
  - Dysuria [Unknown]
  - Back pain [Recovering/Resolving]
  - Chest pain [Unknown]
  - Dyspnoea [Unknown]
  - Hypokalaemia [Unknown]
  - Dehydration [Unknown]
  - Hypertension [Unknown]
  - Liver function test abnormal [Recovered/Resolved]
  - Leukopenia [Unknown]
  - Haematuria [Unknown]
  - Hypocalcaemia [Unknown]
  - Leukocytosis [Recovering/Resolving]
  - Headache [Recovered/Resolved]
  - Vomiting [Unknown]
  - Anaemia [Recovered/Resolved]
